FAERS Safety Report 16682668 (Version 1)
Quarter: 2019Q3

REPORT INFORMATION
  Report Type: Spontaneous
  Country: BE (occurrence: BE)
  Receive Date: 20190808
  Receipt Date: 20190808
  Transmission Date: 20191004
  Serious: Yes (Hospitalization)
  Sender: FDA-Public Use
  Company Number: BE-MYLANLABS-2019M1073366

PATIENT
  Age: 84 Year
  Sex: Female

DRUGS (1)
  1. CO-BISOPROLOL MYLAN [Suspect]
     Active Substance: BISOPROLOL FUMARATE\HYDROCHLOROTHIAZIDE
     Indication: PRODUCT USED FOR UNKNOWN INDICATION
     Dosage: UNK
     Route: 048

REACTIONS (7)
  - Confusional state [Unknown]
  - Fatigue [Unknown]
  - Epilepsy [Unknown]
  - Mineral deficiency [Unknown]
  - Decreased appetite [Unknown]
  - Malaise [Unknown]
  - Syncope [Unknown]
